FAERS Safety Report 13124890 (Version 4)
Quarter: 2017Q2

REPORT INFORMATION
  Report Type: Report from Study
  Country: DE (occurrence: DE)
  Receive Date: 20170118
  Receipt Date: 20170619
  Transmission Date: 20170830
  Serious: Yes (Hospitalization)
  Sender: FDA-Public Use
  Company Number: DE-TEVA-730171ACC

PATIENT
  Weight: 64 kg

DRUGS (6)
  1. DEXAMETHASONE. [Suspect]
     Active Substance: DEXAMETHASONE
     Indication: PLASMA CELL MYELOMA
     Dosage: (CYCLE 1,2 AND CYCLE 3 DAY 1 AND 2)
     Route: 048
     Dates: start: 20161107, end: 20170103
  2. BENDAMUSTINE HYDROCHLORIDE. [Suspect]
     Active Substance: BENDAMUSTINE HYDROCHLORIDE
     Dosage: (CYCLE 3 DAY 15 AND 16 AND CYCLE 4 DAY 8+9)
     Route: 042
     Dates: end: 20170207
  3. BENDAMUSTINE HYDROCHLORIDE. [Suspect]
     Active Substance: BENDAMUSTINE HYDROCHLORIDE
     Indication: PLASMA CELL MYELOMA
     Dosage: (CYCLE 1,2 AND CYCLE 3 DAY 1)
     Route: 042
     Dates: start: 20161107, end: 20170102
  4. DEXAMETHASONE. [Suspect]
     Active Substance: DEXAMETHASONE
     Dosage: (CYCLE 3 DAY 15 AND 16 AND CYCLE 4 DAY 8+9)
     Route: 048
     Dates: end: 20170207
  5. CARFILZOMIB [Suspect]
     Active Substance: CARFILZOMIB
     Dosage: (CYCLE 3 DAY 15 AND 16 AND CYCLE 4 DAY 8+9)
     Route: 042
     Dates: end: 20170207
  6. CARFILZOMIB [Suspect]
     Active Substance: CARFILZOMIB
     Indication: PLASMA CELL MYELOMA
     Dosage: (CYCLE 1,2 AND CYCLE 3 DAY 1 AND 2)
     Route: 042
     Dates: start: 20161107, end: 20170103

REACTIONS (2)
  - Dyspnoea [Recovered/Resolved]
  - Respiratory tract infection [Recovered/Resolved]

NARRATIVE: CASE EVENT DATE: 20170108
